FAERS Safety Report 9752476 (Version 2)
Quarter: 2014Q1

REPORT INFORMATION
  Report Type: Spontaneous
  Country: DE (occurrence: None)
  Receive Date: 20131211
  Receipt Date: 20140127
  Transmission Date: 20141002
  Serious: Yes (Hospitalization, Other)
  Sender: FDA-Public Use
  Company Number: AUR-APL-2013-10404

PATIENT
  Age: 78 Year
  Sex: Male
  Weight: 88 kg

DRUGS (3)
  1. CLOPIDOGREL [Suspect]
     Indication: CORONARY ARTERY DISEASE
     Route: 048
     Dates: start: 201304, end: 20130917
  2. ELIQUIS [Suspect]
     Indication: ATRIAL FIBRILLATION
     Dosage: 5 MG (2.5 MG,2 IN 1 D)
     Route: 048
     Dates: start: 201303, end: 20130917
  3. ACETYLSALICYLIC ACID [Suspect]
     Indication: CORONARY ARTERY DISEASE
     Route: 048
     Dates: start: 201304, end: 20130917

REACTIONS (8)
  - Melaena [None]
  - Gastrointestinal haemorrhage [None]
  - Infarction [None]
  - Anaemia [None]
  - Blood potassium decreased [None]
  - Coronary artery disease [None]
  - Haemoglobin decreased [None]
  - Acute myocardial infarction [None]
